FAERS Safety Report 4664543-8 (Version None)
Quarter: 2005Q2

REPORT INFORMATION
  Report Type: 
  Country: None (occurrence: None)
  Receive Date: 20050516
  Receipt Date: 20050516
  Transmission Date: 20051028
  Serious: Yes (Hospitalization)
  Sender: FDA-Public Use
  Company Number: None

PATIENT
  Age: 43 Year
  Sex: Female
  Weight: 117.9352 kg

DRUGS (1)
  1. ENBREL [Suspect]
     Indication: PSORIASIS
     Dosage: 50 MG X 2 WEEKLY
     Dates: start: 20040530, end: 20050130

REACTIONS (4)
  - BONE INFECTION [None]
  - CELLULITIS [None]
  - MUSCLE DISORDER [None]
  - TOOTH ABSCESS [None]
